FAERS Safety Report 6024976-4 (Version None)
Quarter: 2008Q4

REPORT INFORMATION
  Report Type: 
  Country: None (occurrence: None)
  Receive Date: 20081231
  Receipt Date: 20081223
  Transmission Date: 20090506
  Serious: Yes (Disabling, Other)
  Sender: FDA-Public Use
  Company Number: GB-PFIZER INC-2008159188

PATIENT

DRUGS (2)
  1. GABAPENTIN [Suspect]
     Indication: MIGRAINE PROPHYLAXIS
     Route: 048
     Dates: start: 20080613, end: 20081101
  2. NARATRIPTAN [Concomitant]
     Indication: MIGRAINE PROPHYLAXIS
     Dosage: 2.5 MG, UNK
     Route: 048

REACTIONS (5)
  - DEPRESSION [None]
  - EUPHORIC MOOD [None]
  - HYPOMANIA [None]
  - MIGRAINE [None]
  - WITHDRAWAL SYNDROME [None]
